FAERS Safety Report 12085476 (Version 2)
Quarter: 2016Q1

REPORT INFORMATION
  Report Type: Spontaneous
  Country: US (occurrence: US)
  Receive Date: 20160217
  Receipt Date: 20160330
  Transmission Date: 20160526
  Serious: No
  Sender: FDA-Public Use
  Company Number: US-B.I. PHARMACEUTICALS,INC./RIDGEFIELD-2016-BI-07422BP

PATIENT
  Sex: Female

DRUGS (1)
  1. GILOTRIF [Suspect]
     Active Substance: AFATINIB
     Indication: NON-SMALL CELL LUNG CANCER
     Dosage: STRENGTH: 30MG
     Route: 048

REACTIONS (5)
  - Stomatitis [Unknown]
  - Mucosal inflammation [Unknown]
  - Dry skin [Unknown]
  - Diarrhoea [Unknown]
  - Rash [Unknown]
